FAERS Safety Report 12121492 (Version 1)
Quarter: 2016Q1

REPORT INFORMATION
  Report Type: Spontaneous
  Country: US (occurrence: US)
  Receive Date: 20160226
  Receipt Date: 20160226
  Transmission Date: 20160526
  Serious: No
  Sender: FDA-Public Use
  Company Number: US-ALLERGAN-1304958US

PATIENT
  Age: 59 Year
  Sex: Female

DRUGS (2)
  1. REFRESH OPTIVE SENSITIVE [Suspect]
     Active Substance: CARBOXYMETHYLCELLULOSE SODIUM\GLYCERIN
     Indication: DRY EYE
     Dosage: 4 GTT, PRN
     Route: 047
     Dates: start: 201303, end: 20130403
  2. INSULIN [Concomitant]
     Active Substance: INSULIN NOS
     Indication: DIABETES MELLITUS
     Dosage: UNK UNK, BID
     Route: 058

REACTIONS (8)
  - Swelling face [Recovering/Resolving]
  - Eye pain [Recovering/Resolving]
  - Skin ulcer [Recovering/Resolving]
  - Eye swelling [Recovering/Resolving]
  - Fall [Unknown]
  - Drug hypersensitivity [Recovering/Resolving]
  - Haemorrhage [Recovering/Resolving]
  - Facial pain [Recovering/Resolving]

NARRATIVE: CASE EVENT DATE: 20130403
